FAERS Safety Report 14610257 (Version 4)
Quarter: 2018Q2

REPORT INFORMATION
  Report Type: Report from Study
  Country: BE (occurrence: BE)
  Receive Date: 20180307
  Receipt Date: 20180517
  Transmission Date: 20180711
  Serious: Yes (Hospitalization, Other)
  Sender: FDA-Public Use
  Company Number: BE-PFIZER INC-2018090622

PATIENT
  Sex: Female
  Weight: 60 kg

DRUGS (7)
  1. BEVACIZUMAB. [Suspect]
     Active Substance: BEVACIZUMAB
     Indication: OVARIAN CANCER
     Dosage: 810 MG, EVERY 3 WEEKS
     Route: 042
     Dates: start: 20160818
  2. CORSODYL [Concomitant]
     Active Substance: CHLORHEXIDINE GLUCONATE
     Dosage: UNK
     Dates: start: 201608, end: 20170104
  3. CARBOPLATIN. [Suspect]
     Active Substance: CARBOPLATIN
     Indication: OVARIAN CANCER
     Dosage: UNK UNK, WEEKLY, 2.7AUC
     Route: 042
     Dates: start: 20160812
  4. PERINDOPRIL [Concomitant]
     Active Substance: PERINDOPRIL
     Dosage: UNK
     Route: 065
     Dates: start: 2011, end: 20161119
  5. PACLITAXEL. [Suspect]
     Active Substance: PACLITAXEL
     Indication: OVARIAN CANCER
     Dosage: 60 MG/M2, WEEKLY, INTERRUPTED
     Route: 042
     Dates: start: 20160812
  6. PROLIA [Suspect]
     Active Substance: DENOSUMAB
     Dosage: UNK
  7. PARACETAMOL [Concomitant]
     Active Substance: ACETAMINOPHEN
     Indication: HEADACHE
     Dosage: UNK
     Dates: start: 201608

REACTIONS (35)
  - Trigger finger [Not Recovered/Not Resolved]
  - Vertigo [Not Recovered/Not Resolved]
  - Neutropenia [Recovered/Resolved]
  - Constipation [Not Recovered/Not Resolved]
  - Bone contusion [Recovered/Resolved]
  - Hypokalaemia [Recovered/Resolved]
  - Catheter site injury [Recovered/Resolved]
  - Hypertension [Not Recovered/Not Resolved]
  - Paraesthesia [Not Recovered/Not Resolved]
  - Contusion [Recovered/Resolved]
  - Lip injury [Recovered/Resolved]
  - Decreased appetite [Unknown]
  - Muscular weakness [Recovered/Resolved]
  - Anaemia [Recovered/Resolved]
  - Deep vein thrombosis [Not Recovered/Not Resolved]
  - Decreased appetite [Recovered/Resolved]
  - Nausea [Recovered/Resolved]
  - Pain in extremity [Not Recovered/Not Resolved]
  - Oedema peripheral [Not Recovered/Not Resolved]
  - Nasopharyngitis [Recovered/Resolved]
  - Back pain [Recovered/Resolved]
  - Pruritus [Recovered/Resolved]
  - Nausea [Unknown]
  - Headache [Recovered/Resolved]
  - Cystitis [Recovered/Resolved]
  - Epistaxis [Recovered/Resolved]
  - Peritonitis [Recovered/Resolved]
  - Headache [Not Recovered/Not Resolved]
  - Muscular weakness [Not Recovered/Not Resolved]
  - Stomatitis [Recovered/Resolved]
  - Anaemia [Recovered/Resolved]
  - Dysphagia [Recovered/Resolved]
  - Asthenia [Not Recovered/Not Resolved]
  - Vomiting [Recovered/Resolved]
  - Urinary tract infection [Unknown]

NARRATIVE: CASE EVENT DATE: 20160825
